FAERS Safety Report 14224147 (Version 1)
Quarter: 2017Q4

REPORT INFORMATION
  Report Type: Spontaneous
  Country: BR (occurrence: BR)
  Receive Date: 20171126
  Receipt Date: 20171126
  Transmission Date: 20180321
  Serious: Yes (Other)
  Sender: FDA-Public Use
  Company Number: PHHY2017BR058961

PATIENT
  Sex: Female
  Weight: 62 kg

DRUGS (4)
  1. GLIFAGE [Concomitant]
     Active Substance: METFORMIN HYDROCHLORIDE
     Indication: HYPERGLYCAEMIA
     Dosage: 500 MG, UNK
     Route: 048
  2. DIOVAN [Suspect]
     Active Substance: VALSARTAN
     Indication: HYPERTENSION
     Dosage: 160 MG, QD
     Route: 048
  3. SARSAPARILLA [Concomitant]
     Indication: PSORIASIS
     Dosage: 2 DF, QID 2 GLOBULES 4 TIMES A DAY
     Route: 065
  4. DIOVAN [Suspect]
     Active Substance: VALSARTAN
     Dosage: 80 MG, QD
     Route: 065

REACTIONS (7)
  - Eye inflammation [Recovering/Resolving]
  - General physical health deterioration [Recovered/Resolved]
  - Asthenia [Recovered/Resolved]
  - Depression [Recovering/Resolving]
  - Blood pressure decreased [Recovered/Resolved]
  - Insomnia [Recovering/Resolving]
  - Eyelid oedema [Recovering/Resolving]
